FAERS Safety Report 22626846 (Version 1)
Quarter: 2023Q2

REPORT INFORMATION
  Report Type: Spontaneous
  Country: IE (occurrence: US)
  Receive Date: 20230622
  Receipt Date: 20230622
  Transmission Date: 20230722
  Serious: Yes (Hospitalization, Other)
  Sender: FDA-Public Use
  Company Number: IE-NATCOUSA-2023-NATCOUSA-000152

PATIENT
  Age: 71 Year
  Sex: Male

DRUGS (3)
  1. AZACITIDINE [Suspect]
     Active Substance: AZACITIDINE
     Indication: Acute myeloid leukaemia
     Dosage: 150 MG/DAY FOR SEVEN DAYS, FOLLOWED BY A REST PERIOD OF 21 DAYS (28-DAY TREATMENT CYCLE).
     Route: 058
  2. POSACONAZOLE [Suspect]
     Active Substance: POSACONAZOLE
     Indication: Infection prophylaxis
     Route: 048
  3. VALACYCLOVIR [Suspect]
     Active Substance: VALACYCLOVIR HYDROCHLORIDE
     Indication: Infection prophylaxis
     Route: 048

REACTIONS (3)
  - Arthritis reactive [Recovering/Resolving]
  - Urinary retention [Unknown]
  - Conjunctivitis [Unknown]
